FAERS Safety Report 5296228-1 (Version None)
Quarter: 2007Q2

REPORT INFORMATION
  Report Type: 
  Country: None (occurrence: None)
  Receive Date: 20070413
  Receipt Date: 20070406
  Transmission Date: 20071010
  Serious: Yes (Other)
  Sender: FDA-Public Use
  Company Number: FR-GLAXOSMITHKLINE-B0465823A

PATIENT
  Age: 58 Year
  Sex: Male

DRUGS (4)
  1. ARIXTRA [Suspect]
     Indication: CEREBRAL THROMBOSIS
     Dosage: 7.5MG PER DAY
     Route: 058
     Dates: start: 20060901
  2. NEURONTIN [Suspect]
     Indication: DRUG USE FOR UNKNOWN INDICATION
  3. FLUANXOL [Concomitant]
  4. CORTICOIDS [Concomitant]

REACTIONS (2)
  - HEPATOCELLULAR DAMAGE [None]
  - TRANSAMINASES INCREASED [None]
